FAERS Safety Report 20235502 (Version 1)
Quarter: 2021Q4

REPORT INFORMATION
  Report Type: Spontaneous
  Country: CA (occurrence: CA)
  Receive Date: 20211228
  Receipt Date: 20211228
  Transmission Date: 20220303
  Serious: Yes (Other)
  Sender: FDA-Public Use
  Company Number: CA-AUROBINDO-AUR-APL-2021-052760

PATIENT
  Age: 71 Year
  Sex: Male

DRUGS (2)
  1. METRONIDAZOLE [Suspect]
     Active Substance: METRONIDAZOLE
     Indication: Diabetic foot infection
     Dosage: UNK
     Route: 048
  2. CEFAZOLIN [Suspect]
     Active Substance: CEFAZOLIN
     Indication: Diabetic foot infection
     Dosage: UNK
     Route: 041

REACTIONS (3)
  - Stevens-Johnson syndrome [Unknown]
  - Generalised bullous fixed drug eruption [Unknown]
  - Hypersensitivity [Unknown]
